FAERS Safety Report 11760006 (Version 1)
Quarter: 2015Q4

REPORT INFORMATION
  Report Type: Spontaneous
  Country: CA (occurrence: CA)
  Receive Date: 20151120
  Receipt Date: 20151120
  Transmission Date: 20160304
  Serious: Yes (Other)
  Sender: FDA-Public Use
  Company Number: CA-TEVA-611062ACC

PATIENT
  Age: 61 Year
  Sex: Female
  Weight: 68 kg

DRUGS (8)
  1. CLOPIDOGREL [Suspect]
     Active Substance: CLOPIDOGREL BISULFATE
     Indication: ANTIPLATELET THERAPY
  2. SIMVASTATIN. [Concomitant]
     Active Substance: SIMVASTATIN
  3. LORAZEPAM. [Concomitant]
     Active Substance: LORAZEPAM
  4. RAMIPRIL. [Concomitant]
     Active Substance: RAMIPRIL
  5. ASA [Concomitant]
     Active Substance: ASPIRIN
  6. CLOPIDOGREL [Suspect]
     Active Substance: CLOPIDOGREL BISULFATE
     Indication: MYOCARDIAL INFARCTION
     Route: 048
  7. ESOMEPRAZOLE [Concomitant]
     Active Substance: ESOMEPRAZOLE
  8. FRAGMIN [Concomitant]
     Active Substance: DALTEPARIN SODIUM
     Route: 042

REACTIONS (2)
  - C-reactive protein increased [Recovered/Resolved]
  - Polyarthritis [Recovered/Resolved]
